FAERS Safety Report 7915984-4 (Version None)
Quarter: 2011Q4

REPORT INFORMATION
  Report Type: 
  Country: None (occurrence: None)
  Receive Date: 20111115
  Receipt Date: 20111107
  Transmission Date: 20120403
  Serious: Yes (Other)
  Sender: FDA-Public Use
  Company Number: CA-ASTRAZENECA-2011SE67090

PATIENT
  Age: 77 Year
  Sex: Male
  Weight: 61 kg

DRUGS (7)
  1. CRESTOR [Suspect]
     Route: 048
  2. ASPIRIN [Concomitant]
  3. CRESTOR [Suspect]
     Route: 048
  4. METOPROLOL SUCCINATE [Concomitant]
  5. RANITIDINE [Concomitant]
  6. EZETIMIBE [Concomitant]
  7. RAMIPRIL [Concomitant]

REACTIONS (2)
  - BLOOD CREATININE INCREASED [None]
  - ALBUMIN URINE PRESENT [None]
